FAERS Safety Report 5054474-6 (Version None)
Quarter: 2006Q2

REPORT INFORMATION
  Report Type: 
  Country: None (occurrence: None)
  Receive Date: 20060616
  Receipt Date: 20060228
  Transmission Date: 20061013
  Serious: Yes (Hospitalization)
  Sender: FDA-Public Use
  Company Number: 222670

PATIENT
  Age: 58 Year
  Sex: Male
  Weight: 86.2 kg

DRUGS (5)
  1. AVASTIN [Suspect]
     Indication: LUNG NEOPLASM MALIGNANT
     Dosage: 1300 MG, Q3W, INTRAVENOUS
     Route: 042
     Dates: start: 20051206
  2. CARBOPLATIN [Concomitant]
  3. TAXOTERE [Concomitant]
  4. ALOXI [Concomitant]
  5. DECADRON [Concomitant]

REACTIONS (1)
  - MUSCLE HAEMORRHAGE [None]
